FAERS Safety Report 9495301 (Version 1)
Quarter: 2013Q3

REPORT INFORMATION
  Report Type: Spontaneous
  Country: GB (occurrence: None)
  Receive Date: 20130828
  Receipt Date: 20130828
  Transmission Date: 20140515
  Serious: Yes (Disabling, Other)
  Sender: FDA-Public Use
  Company Number: GER/UKI/13/0034279

PATIENT
  Age: 69 Year
  Sex: Female
  Weight: 70 kg

DRUGS (6)
  1. ZOLEDRONIC ACID (ZOLEDRONIC ACID) [Suspect]
     Indication: OSTEOPOROSIS POSTMENOPAUSAL
     Route: 042
     Dates: start: 20130731, end: 20130731
  2. ASPIRIN COATED (ACETYLSALICYLIC ACID) [Concomitant]
  3. CITALOPRAM HYDROCHLORIDE (CITALOPRAM HYDROCHLORIDE) [Concomitant]
  4. OMEPRAZOLE (OMEPRAZOLE) [Concomitant]
  5. PARACETAMOL (PARACETAMOL) [Concomitant]
  6. SOLIFENACIN [Concomitant]

REACTIONS (6)
  - Decreased appetite [None]
  - Arthralgia [None]
  - Headache [None]
  - Chills [None]
  - Local swelling [None]
  - Local swelling [None]
